FAERS Safety Report 7891926-5 (Version None)
Quarter: 2011Q4

REPORT INFORMATION
  Report Type: 
  Country: None (occurrence: None)
  Receive Date: 20111103
  Receipt Date: 20110811
  Transmission Date: 20120403
  Serious: No
  Sender: FDA-Public Use
  Company Number: US-AMGEN-USASP2011040881

PATIENT
  Age: 68 Year
  Sex: Female

DRUGS (1)
  1. ENBREL [Suspect]
     Indication: RHEUMATOID ARTHRITIS
     Dosage: 50 MG, QWK
     Dates: start: 20110615

REACTIONS (6)
  - WEIGHT INCREASED [None]
  - FLUID RETENTION [None]
  - THERAPEUTIC RESPONSE DECREASED [None]
  - VITAMIN D ABNORMAL [None]
  - CONTUSION [None]
  - INJECTION SITE HAEMATOMA [None]
